FAERS Safety Report 23491323 (Version 1)
Quarter: 2024Q1

REPORT INFORMATION
  Report Type: Spontaneous
  Country: CA (occurrence: CA)
  Receive Date: 20240207
  Receipt Date: 20240207
  Transmission Date: 20240409
  Serious: Yes (Other)
  Sender: FDA-Public Use
  Company Number: None

PATIENT
  Sex: Female

DRUGS (4)
  1. EZETIMIBE [Suspect]
     Active Substance: EZETIMIBE
     Indication: Product used for unknown indication
     Route: 065
  2. ROSUVASTATIN CALCIUM [Suspect]
     Active Substance: ROSUVASTATIN CALCIUM
     Indication: Product used for unknown indication
     Route: 065
  3. FENOFIBRATE [Suspect]
     Active Substance: FENOFIBRATE
     Indication: Product used for unknown indication
     Route: 065
  4. INCLISIRAN [Suspect]
     Active Substance: INCLISIRAN
     Indication: Type IIa hyperlipidaemia
     Route: 058

REACTIONS (7)
  - Apolipoprotein B increased [Unknown]
  - Blood glucose increased [Unknown]
  - Blood thyroid stimulating hormone increased [Unknown]
  - Blood triglycerides increased [Unknown]
  - C-reactive protein increased [Unknown]
  - Glycosylated haemoglobin increased [Unknown]
  - High density lipoprotein decreased [Unknown]
